FAERS Safety Report 6123457-7 (Version None)
Quarter: 2009Q1

REPORT INFORMATION
  Report Type: 
  Country: None (occurrence: None)
  Receive Date: 20090318
  Receipt Date: 20090311
  Transmission Date: 20090719
  Serious: No
  Sender: FDA-Public Use
  Company Number: US-B.I. PHARMACEUTICALS,INC./RIDGEFIELD-2009-BP-03078BP

PATIENT
  Age: 81 Year
  Sex: Female

DRUGS (5)
  1. AGGRENOX [Suspect]
     Indication: TRANSIENT ISCHAEMIC ATTACK
     Route: 048
     Dates: start: 20090305
  2. SYNTHROID [Concomitant]
     Indication: THYROID DISORDER
  3. COZAAR [Concomitant]
  4. NEXIUM [Concomitant]
     Indication: GASTROOESOPHAGEAL REFLUX DISEASE
  5. ASPIRIN [Concomitant]
     Indication: TRANSIENT ISCHAEMIC ATTACK

REACTIONS (3)
  - EYE PAIN [None]
  - HEADACHE [None]
  - PAIN IN EXTREMITY [None]
